FAERS Safety Report 9031697 (Version 1)
Quarter: 2013Q1

REPORT INFORMATION
  Report Type: Report from Study
  Country: US (occurrence: US)
  Receive Date: 20130124
  Receipt Date: 20130124
  Transmission Date: 20140127
  Serious: Yes (Hospitalization)
  Sender: FDA-Public Use
  Company Number: US-PFIZER INC-2013018444

PATIENT
  Age: 40 Year
  Sex: Male

DRUGS (15)
  1. CARBOPLATIN [Suspect]
     Indication: METASTATIC SQUAMOUS CELL CARCINOMA
     Dosage: UNK
     Dates: start: 20130103
  2. CARBOPLATIN [Suspect]
     Indication: HEAD AND NECK CANCER METASTATIC
  3. CARBOPLATIN [Suspect]
     Indication: MALIGNANT NEOPLASM OF EYE
  4. CARBOPLATIN [Suspect]
     Indication: EAR NEOPLASM MALIGNANT
  5. CARBOPLATIN [Suspect]
     Indication: THROAT CANCER
  6. TORISEL [Suspect]
     Indication: METASTATIC SQUAMOUS CELL CARCINOMA
     Dosage: UNK
     Dates: start: 20130103
  7. TORISEL [Suspect]
     Indication: HEAD AND NECK CANCER METASTATIC
  8. TORISEL [Suspect]
     Indication: MALIGNANT NEOPLASM OF EYE
  9. TORISEL [Suspect]
     Indication: EAR NEOPLASM MALIGNANT
  10. TORISEL [Suspect]
     Indication: THROAT CANCER
  11. TAXOL [Suspect]
     Indication: METASTATIC SQUAMOUS CELL CARCINOMA
     Dosage: UNK
     Dates: start: 20130103
  12. TAXOL [Suspect]
     Indication: HEAD AND NECK CANCER METASTATIC
  13. TAXOL [Suspect]
     Indication: MALIGNANT NEOPLASM OF EYE
  14. TAXOL [Suspect]
     Indication: EAR NEOPLASM MALIGNANT
  15. TAXOL [Suspect]
     Indication: THROAT CANCER

REACTIONS (1)
  - Pyrexia [Unknown]
